FAERS Safety Report 25503719 (Version 4)
Quarter: 2025Q3

REPORT INFORMATION
  Report Type: Spontaneous
  Country: GB (occurrence: GB)
  Receive Date: 20250702
  Receipt Date: 20250729
  Transmission Date: 20251021
  Serious: No
  Sender: PFIZER
  Company Number: GB-PFIZER INC-PV202500049224

PATIENT
  Age: 15 Year
  Sex: Female

DRUGS (1)
  1. ENBREL [Suspect]
     Active Substance: ETANERCEPT
     Indication: Juvenile idiopathic arthritis
     Dosage: 15 MG, 2X/WEEK
     Route: 058

REACTIONS (3)
  - Product dose omission in error [Unknown]
  - Incorrect dose administered [Unknown]
  - Product communication issue [Unknown]
